FAERS Safety Report 7776247-3 (Version None)
Quarter: 2011Q3

REPORT INFORMATION
  Report Type: 
  Country: None (occurrence: None)
  Receive Date: 20110921
  Receipt Date: 20110914
  Transmission Date: 20111222
  Serious: Yes (Other)
  Sender: FDA-Public Use
  Company Number: 2011SP043422

PATIENT
  Age: 44 Year
  Weight: 60 kg

DRUGS (7)
  1. MIRTAZAPINE [Suspect]
     Indication: PRODUCT USED FOR UNKNOWN INDICATION
     Dosage: 15 MG; PO
     Route: 048
     Dates: start: 20110707, end: 20110905
  2. LOFEPRAMINE [Concomitant]
  3. SIMVASTATIN [Concomitant]
  4. VALPROIC ACID [Concomitant]
  5. ZOPICLONE [Concomitant]
  6. LANSOPRAZOLE [Concomitant]
  7. LEVOTHYROXINE [Concomitant]

REACTIONS (2)
  - HYPERHIDROSIS [None]
  - INFLUENZA LIKE ILLNESS [None]
